FAERS Safety Report 24631062 (Version 1)
Quarter: 2024Q4

REPORT INFORMATION
  Report Type: Spontaneous
  Country: US (occurrence: None)
  Receive Date: 20241115
  Receipt Date: 20241115
  Transmission Date: 20250115
  Serious: Yes (Other)
  Sender: Public
  Company Number: None

PATIENT
  Age: 22 Year
  Sex: Female
  Weight: 54 kg

DRUGS (4)
  1. PHEXXI [Suspect]
     Active Substance: CITRIC ACID MONOHYDRATE\LACTIC ACID, L-\POTASSIUM BITARTRATE
     Indication: Contraception
     Dosage: 12 SUPOSITOR  1 EVER HR OF  SEX VGINAL ?
     Route: 067
     Dates: start: 20241031, end: 20241110
  2. ORILISSA [Concomitant]
     Active Substance: ELAGOLIX SODIUM
  3. PROAIR HFA [Concomitant]
     Active Substance: ALBUTEROL SULFATE
  4. PRENATAL VITAMIN BONE SUPPORT [Concomitant]

REACTIONS (5)
  - Vulvovaginal burning sensation [None]
  - Vulvovaginal pain [None]
  - Vaginal haemorrhage [None]
  - Chemical burn [None]
  - Therapy cessation [None]

NARRATIVE: CASE EVENT DATE: 20241110
